FAERS Safety Report 12557056 (Version 4)
Quarter: 2016Q3

REPORT INFORMATION
  Report Type: Spontaneous
  Country: JP (occurrence: JP)
  Receive Date: 20160714
  Receipt Date: 20160818
  Transmission Date: 20161109
  Serious: Yes (Death, Hospitalization, Other)
  Sender: FDA-Public Use
  Company Number: JP-ELI_LILLY_AND_COMPANY-JP201607003255

PATIENT
  Age: 75 Year
  Sex: Male
  Weight: 59 kg

DRUGS (6)
  1. TS-1 [Suspect]
     Active Substance: GIMERACIL\OTERACIL\TEGAFUR
     Indication: COLON CANCER
     Dosage: 120 MG, QD
     Route: 048
     Dates: start: 20160518
  2. TS-1 [Suspect]
     Active Substance: GIMERACIL\OTERACIL\TEGAFUR
     Dosage: 100 MG, UNK
     Route: 048
     Dates: start: 20160615
  3. ERBITUX [Suspect]
     Active Substance: CETUXIMAB
     Indication: COLON CANCER
     Dosage: UNK
     Route: 042
     Dates: start: 20160518, end: 20160720
  4. IRINOTECAN [Suspect]
     Active Substance: IRINOTECAN
     Dosage: 120 MG, UNKNOWN
     Route: 042
     Dates: start: 20160615
  5. IRINOTECAN [Suspect]
     Active Substance: IRINOTECAN
     Indication: COLON CANCER
     Dosage: 150 MG, UNK
     Route: 042
     Dates: start: 20160518
  6. DOCETAXEL. [Concomitant]
     Active Substance: DOCETAXEL
     Indication: COLON CANCER
     Dosage: UNK
     Route: 042
     Dates: start: 20160720

REACTIONS (12)
  - Peritonitis [Fatal]
  - Constipation [Unknown]
  - Sepsis [Fatal]
  - Decreased appetite [Unknown]
  - Dizziness [Unknown]
  - Large intestine perforation [Fatal]
  - Dehydration [Unknown]
  - Off label use [Unknown]
  - Hypophagia [Unknown]
  - Disseminated intravascular coagulation [Fatal]
  - Dysgeusia [Unknown]
  - Diarrhoea [Unknown]

NARRATIVE: CASE EVENT DATE: 20160518
